FAERS Safety Report 8988951 (Version 1)
Quarter: 2012Q4

REPORT INFORMATION
  Report Type: Spontaneous
  Country: US (occurrence: None)
  Receive Date: 20121220
  Receipt Date: 20121220
  Transmission Date: 20130627
  Serious: Yes (Other)
  Sender: FDA-Public Use
  Company Number: 2012MA014158

PATIENT
  Age: 17 Year
  Sex: Female

DRUGS (1)
  1. MICONAZOLE [Suspect]
     Indication: YEAST INFECTION
     Route: 067
     Dates: start: 20121216

REACTIONS (1)
  - Haemorrhage [None]
